FAERS Safety Report 4402949-2 (Version None)
Quarter: 2004Q3

REPORT INFORMATION
  Report Type: 
  Country: None (occurrence: None)
  Receive Date: 20040721
  Receipt Date: 20030708
  Transmission Date: 20050211
  Serious: Yes (Life-Threatening, Hospitalization, Disabling)
  Sender: FDA-Public Use
  Company Number: US-GLAXOSMITHKLINE-A0416331A

PATIENT
  Age: 52 Year
  Sex: Female
  Weight: 76.4 kg

DRUGS (7)
  1. IMITREX [Suspect]
     Indication: MIGRAINE
     Dosage: 50MG UNKNOWN
     Route: 048
     Dates: end: 20030526
  2. SYNTHROID [Concomitant]
     Dosage: 125MCG PER DAY
  3. MULTI-VITAMIN [Concomitant]
  4. ERYTHROMYCIN [Concomitant]
     Indication: FURUNCLE
  5. ESTROGEN [Concomitant]
     Route: 062
  6. DILAUDID [Concomitant]
  7. LEXAPRO [Concomitant]

REACTIONS (8)
  - ARTERIOSPASM CORONARY [None]
  - CHEST DISCOMFORT [None]
  - CHEST PAIN [None]
  - DYSPNOEA [None]
  - HYPERHIDROSIS [None]
  - MYOCARDIAL INFARCTION [None]
  - NAUSEA [None]
  - VOMITING [None]
